FAERS Safety Report 18790613 (Version 1)
Quarter: 2021Q1

REPORT INFORMATION
  Report Type: Spontaneous
  Country: IT (occurrence: IT)
  Receive Date: 20210126
  Receipt Date: 20210126
  Transmission Date: 20210419
  Serious: Yes (Hospitalization, Other)
  Sender: FDA-Public Use
  Company Number: IT-ASTRAZENECA-2021A011900

PATIENT
  Age: 74 Year
  Sex: Female

DRUGS (2)
  1. IMFINZI [Suspect]
     Active Substance: DURVALUMAB
     Route: 042
  2. IMFINZI [Suspect]
     Active Substance: DURVALUMAB
     Route: 042
     Dates: start: 20190410, end: 20190805

REACTIONS (10)
  - Asthenia [Recovered/Resolved]
  - Dyspnoea at rest [Unknown]
  - Hypersomnia [Recovered/Resolved]
  - Creatinine renal clearance decreased [Unknown]
  - Pneumocystis jirovecii pneumonia [Recovered/Resolved]
  - Disease progression [Unknown]
  - Oxygen saturation decreased [Unknown]
  - Tachycardia [Unknown]
  - Blood creatinine increased [Recovering/Resolving]
  - Pyrexia [Unknown]

NARRATIVE: CASE EVENT DATE: 20190708
